FAERS Safety Report 16417195 (Version 1)
Quarter: 2019Q2

REPORT INFORMATION
  Report Type: Spontaneous
  Country: US (occurrence: US)
  Receive Date: 20190611
  Receipt Date: 20190611
  Transmission Date: 20190711
  Serious: No
  Sender: FDA-Public Use
  Company Number: US-PFIZER INC-2019242536

PATIENT
  Age: 87 Year
  Sex: Female
  Weight: 56.7 kg

DRUGS (1)
  1. PREMARIN [Suspect]
     Active Substance: ESTROGENS, CONJUGATED
     Indication: HORMONE THERAPY
     Dosage: 1.25 MG, 1X/DAY
     Route: 048

REACTIONS (4)
  - Feeling abnormal [Unknown]
  - Body height decreased [Unknown]
  - Hot flush [Unknown]
  - Vertigo [Recovered/Resolved]
